FAERS Safety Report 6588010-X (Version None)
Quarter: 2010Q1

REPORT INFORMATION
  Report Type: 
  Country: None (occurrence: None)
  Receive Date: 20100218
  Receipt Date: 20100203
  Transmission Date: 20100710
  Serious: Yes (Death, Other)
  Sender: FDA-Public Use
  Company Number: US-TYCO HEALTHCARE/MALLINCKRODT-T201000593

PATIENT
  Sex: Male
  Weight: 63.492 kg

DRUGS (7)
  1. METHADONE [Suspect]
     Indication: PAIN
     Dosage: 5 MG QD
     Route: 048
     Dates: start: 20091019, end: 20091112
  2. METHADONE [Suspect]
     Dosage: UNK, Q 2 HOURS
     Dates: start: 20091113, end: 20091117
  3. OXYCONTIN [Suspect]
     Indication: PAIN
     Dosage: 40 MG Q 12 HOURS
     Route: 048
     Dates: start: 20091019, end: 20091019
  4. OXYCONTIN [Suspect]
     Dosage: 1/4 OF A TAB
     Dates: start: 20091020, end: 20091112
  5. OXYCONTIN [Suspect]
     Dosage: UNK, Q 2 HOURS
     Dates: start: 20091113, end: 20091117
  6. ATIVAN [Suspect]
     Dosage: 1 MG QD
     Route: 048
  7. INSULIN [Concomitant]
     Indication: DIABETES MELLITUS
     Dosage: 15

REACTIONS (3)
  - DEATH [None]
  - INAPPROPRIATE SCHEDULE OF DRUG ADMINISTRATION [None]
  - WRONG TECHNIQUE IN DRUG USAGE PROCESS [None]
